FAERS Safety Report 7440693-8 (Version None)
Quarter: 2011Q2

REPORT INFORMATION
  Report Type: 
  Country: None (occurrence: None)
  Receive Date: 20110427
  Receipt Date: 20110419
  Transmission Date: 20111010
  Serious: Yes (Other)
  Sender: FDA-Public Use
  Company Number: US-B.I. PHARMACEUTICALS,INC./RIDGEFIELD-2011-BP-09785BP

PATIENT
  Sex: Female

DRUGS (6)
  1. SPIRIVA [Suspect]
     Indication: CHRONIC OBSTRUCTIVE PULMONARY DISEASE
     Dosage: 18 MCG
     Route: 055
     Dates: start: 20110325, end: 20110328
  2. LORAZEPAM [Concomitant]
  3. OXYCODONE HCL AND ACETAMINOPHEN [Concomitant]
  4. SPIRIVA [Suspect]
     Indication: EMPHYSEMA
  5. LEVOTHYROXINE SODIUM [Concomitant]
  6. VITAMIN D [Concomitant]

REACTIONS (3)
  - SWOLLEN TONGUE [None]
  - DYSPNOEA [None]
  - LIP SWELLING [None]
